FAERS Safety Report 8244646-1 (Version None)
Quarter: 2012Q1

REPORT INFORMATION
  Report Type: 
  Country: None (occurrence: None)
  Receive Date: 20120329
  Receipt Date: 20120104
  Transmission Date: 20120608
  Serious: No
  Sender: FDA-Public Use
  Company Number: US-MYLANLABS-2011S1024760

PATIENT
  Sex: Male

DRUGS (2)
  1. FENTANYL-100 [Suspect]
     Indication: CANCER PAIN
     Dosage: Q72HR
     Route: 062
     Dates: start: 20110301, end: 20111201
  2. FENTANYL-100 [Suspect]
     Indication: METASTATIC MALIGNANT MELANOMA
     Dosage: Q72HR
     Route: 062
     Dates: start: 20110301, end: 20111201

REACTIONS (1)
  - SKIN IRRITATION [None]
